FAERS Safety Report 6408385-1 (Version None)
Quarter: 2009Q4

REPORT INFORMATION
  Report Type: 
  Country: None (occurrence: None)
  Receive Date: 20091021
  Receipt Date: 20091012
  Transmission Date: 20100525
  Serious: Yes (Hospitalization)
  Sender: FDA-Public Use
  Company Number: US-AMGEN-QUU368600

PATIENT
  Age: 56 Year
  Sex: Female

DRUGS (3)
  1. NEULASTA [Suspect]
     Indication: CHEMOTHERAPY
     Route: 065
  2. DOCETAXEL [Concomitant]
     Route: 042
  3. CYCLOPHOSPHAMIDE [Concomitant]
     Route: 042

REACTIONS (3)
  - CAECITIS [None]
  - ENTEROCOLITIS [None]
  - NEUTROPENIA [None]
